FAERS Safety Report 10909696 (Version 1)
Quarter: 2015Q1

REPORT INFORMATION
  Report Type: Spontaneous
  Country: US (occurrence: US)
  Receive Date: 20150312
  Receipt Date: 20150312
  Transmission Date: 20150721
  Serious: No
  Sender: FDA-Public Use
  Company Number: US-SA-2014SA070621

PATIENT
  Age: 70 Year
  Sex: Female

DRUGS (2)
  1. NASACORT ALLERGY 24HR [Suspect]
     Active Substance: TRIAMCINOLONE ACETONIDE
     Indication: PRODUCT USED FOR UNKNOWN INDICATION
     Dosage: 60 SPRAY
     Route: 045
  2. COUMADIN [Concomitant]
     Active Substance: WARFARIN SODIUM
     Dosage: FROM 30 YEARS?DOSE:5 MG/6 MG/6 MG ON ALTERNATING DAYS
     Route: 065

REACTIONS (4)
  - Throat tightness [Unknown]
  - Dysphagia [Unknown]
  - Pharyngitis [Unknown]
  - Productive cough [Unknown]
